FAERS Safety Report 8299485-2 (Version None)
Quarter: 2012Q2

REPORT INFORMATION
  Report Type: 
  Country: None (occurrence: None)
  Receive Date: 20120419
  Receipt Date: 20120416
  Transmission Date: 20120825
  Serious: Yes (Hospitalization, Other)
  Sender: FDA-Public Use
  Company Number: US-TEVA-333876USA

PATIENT
  Sex: Male
  Weight: 99.88 kg

DRUGS (3)
  1. PHENELZINE [Concomitant]
     Route: 048
  2. TRAZODONE HCL [Concomitant]
     Route: 048
  3. PROVIGIL [Suspect]
     Indication: NARCOLEPSY
     Dosage: 200 MILLIGRAM;
     Route: 048
     Dates: start: 20000101

REACTIONS (5)
  - VOMITING [None]
  - MYOCARDIAL INFARCTION [None]
  - ABDOMINAL PAIN UPPER [None]
  - FREQUENT BOWEL MOVEMENTS [None]
  - HEADACHE [None]
